FAERS Safety Report 4740473-8 (Version None)
Quarter: 2005Q3

REPORT INFORMATION
  Report Type: 
  Country: None (occurrence: None)
  Receive Date: 20050810
  Receipt Date: 20050802
  Transmission Date: 20060218
  Serious: No
  Sender: FDA-Public Use
  Company Number: US-BOEHRINGER INGELHEIM PHARMACEUTICALS, INC.-2005-DE-02999GD

PATIENT
  Sex: Male

DRUGS (6)
  1. IPRATROPIUM BROMIDE [Suspect]
     Route: 015
  2. ALBUTEROL SULFATE [Suspect]
     Route: 015
  3. METHYLPREDNISOLONE 16MG TAB [Suspect]
     Route: 015
  4. NIMBEX [Suspect]
     Route: 015
  5. LORAZEPAM [Suspect]
     Route: 015
  6. BICARBONATE [Suspect]
     Route: 015

REACTIONS (4)
  - APGAR SCORE LOW [None]
  - CAESAREAN SECTION [None]
  - DRUG EXPOSURE DURING PREGNANCY [None]
  - FOETAL HEART RATE ABNORMAL [None]
